FAERS Safety Report 7067441-8 (Version None)
Quarter: 2010Q4

REPORT INFORMATION
  Report Type: 
  Country: None (occurrence: None)
  Receive Date: 20101026
  Receipt Date: 20101026
  Transmission Date: 20110411
  Serious: No
  Sender: FDA-Public Use
  Company Number: None

PATIENT
  Age: 53 Year
  Sex: Female
  Weight: 55.7924 kg

DRUGS (1)
  1. CIPRO [Suspect]
     Indication: URINARY TRACT INFECTION
     Dosage: 500 MG 2 DAY PO
     Route: 048
     Dates: start: 20100904, end: 20100907

REACTIONS (3)
  - INSOMNIA [None]
  - NEURALGIA [None]
  - PARAESTHESIA [None]
